FAERS Safety Report 6707089-5 (Version None)
Quarter: 2010Q2

REPORT INFORMATION
  Report Type: 
  Country: None (occurrence: None)
  Receive Date: 20100503
  Receipt Date: 20100427
  Transmission Date: 20101027
  Serious: Yes (Hospitalization)
  Sender: FDA-Public Use
  Company Number: A0818001A

PATIENT
  Sex: Female
  Weight: 125 kg

DRUGS (1)
  1. ROSIGLITAZONE [Suspect]
     Route: 048

REACTIONS (3)
  - BUNDLE BRANCH BLOCK RIGHT [None]
  - CONDITION AGGRAVATED [None]
  - CORONARY ARTERY DISEASE [None]
